FAERS Safety Report 12830467 (Version 1)
Quarter: 2016Q4

REPORT INFORMATION
  Report Type: Spontaneous
  Country: US (occurrence: US)
  Receive Date: 20161007
  Receipt Date: 20161007
  Transmission Date: 20170207
  Serious: No
  Sender: FDA-Public Use
  Company Number: US-SA-2016SA144643

PATIENT
  Age: 37 Year
  Sex: Female

DRUGS (8)
  1. LISINOPRIL. [Concomitant]
     Active Substance: LISINOPRIL
  2. AUBAGIO [Suspect]
     Active Substance: TERIFLUNOMIDE
     Indication: MULTIPLE SCLEROSIS
     Route: 048
  3. MIRENA [Concomitant]
     Active Substance: LEVONORGESTREL
  4. ALEVE [Concomitant]
     Active Substance: NAPROXEN SODIUM
  5. VITAMIN B12 [Concomitant]
     Active Substance: CYANOCOBALAMIN
  6. VITAMIN D [Concomitant]
     Active Substance: CHOLECALCIFEROL
  7. AMPYRA [Concomitant]
     Active Substance: DALFAMPRIDINE
  8. BUPROPION HYDROCHLORIDE. [Concomitant]
     Active Substance: BUPROPION HYDROCHLORIDE

REACTIONS (5)
  - Diarrhoea [Unknown]
  - Pain [Recovering/Resolving]
  - Headache [Recovering/Resolving]
  - Nausea [Unknown]
  - Musculoskeletal pain [Unknown]

NARRATIVE: CASE EVENT DATE: 20160726
